FAERS Safety Report 14910763 (Version 1)
Quarter: 2018Q2

REPORT INFORMATION
  Report Type: Spontaneous
  Country: US (occurrence: US)
  Receive Date: 20180517
  Receipt Date: 20180517
  Transmission Date: 20180711
  Serious: No
  Sender: FDA-Public Use
  Company Number: US-SYNERGY PHARMACEUTICALS INC-US-2018SNG000045

PATIENT

DRUGS (4)
  1. TRULANCE [Suspect]
     Active Substance: PLECANATIDE
     Indication: CONSTIPATION
     Dosage: 3 MG, QD
     Route: 048
     Dates: start: 20180215, end: 20180217
  2. TRULANCE [Suspect]
     Active Substance: PLECANATIDE
     Dosage: 3 MG EVERY 3 DAYS
     Route: 048
     Dates: start: 20180223, end: 20180223
  3. TRULANCE [Suspect]
     Active Substance: PLECANATIDE
     Dosage: HALF 3 MG TABLET, ONCE EVERY 3 DAYS
     Route: 048
     Dates: start: 20180226
  4. TRULANCE [Suspect]
     Active Substance: PLECANATIDE
     Dosage: 3 MG, QD
     Route: 048
     Dates: start: 20180220, end: 20180220

REACTIONS (4)
  - Asthenia [Not Recovered/Not Resolved]
  - Wrong technique in product usage process [Unknown]
  - Diarrhoea [Not Recovered/Not Resolved]
  - Product use issue [Unknown]

NARRATIVE: CASE EVENT DATE: 20180216
